FAERS Safety Report 16397716 (Version 1)
Quarter: 2019Q2

REPORT INFORMATION
  Report Type: Spontaneous
  Country: US (occurrence: US)
  Receive Date: 20190606
  Receipt Date: 20190606
  Transmission Date: 20190711
  Serious: No
  Sender: FDA-Public Use
  Company Number: US-ELI_LILLY_AND_COMPANY-US201905014931

PATIENT
  Sex: Female

DRUGS (1)
  1. EMGALITY [Suspect]
     Active Substance: GALCANEZUMAB-GNLM
     Indication: PRODUCT USED FOR UNKNOWN INDICATION
     Dosage: 2 DOSAGE FORM, LOADING DOSE
     Route: 058
     Dates: start: 20190507

REACTIONS (5)
  - Malaise [Unknown]
  - Pyrexia [Unknown]
  - Dyspepsia [Unknown]
  - Abdominal pain upper [Unknown]
  - Diarrhoea [Unknown]
